FAERS Safety Report 17854446 (Version 5)
Quarter: 2020Q3

REPORT INFORMATION
  Report Type: Spontaneous
  Country: US (occurrence: US)
  Receive Date: 20200603
  Receipt Date: 20200822
  Transmission Date: 20201103
  Serious: No
  Sender: FDA-Public Use
  Company Number: US-SA-2020SA138628

PATIENT

DRUGS (1)
  1. NASACORT AQ [Suspect]
     Active Substance: TRIAMCINOLONE ACETONIDE
     Dosage: UNK UNK, QD (1 SPRAY PER NOSTRIL)
     Route: 045

REACTIONS (4)
  - Nasal congestion [Unknown]
  - Device issue [Unknown]
  - Drug ineffective [Unknown]
  - Product dose omission issue [Unknown]
